FAERS Safety Report 23774573 (Version 2)
Quarter: 2025Q2

REPORT INFORMATION
  Report Type: Report from Study
  Country: US (occurrence: US)
  Receive Date: 20240423
  Receipt Date: 20250528
  Transmission Date: 20250717
  Serious: Yes (Other)
  Sender: SANOFI AVENTIS
  Company Number: US-SA-SAC20240419000018

PATIENT
  Age: 54 Year
  Sex: Female

DRUGS (8)
  1. DUPILUMAB [Suspect]
     Active Substance: DUPILUMAB
     Indication: Asthma
     Route: 058
  2. DUPILUMAB [Suspect]
     Active Substance: DUPILUMAB
     Dosage: 300 MG, QOW
     Route: 058
     Dates: start: 20240524
  3. XARELTO [Concomitant]
     Active Substance: RIVAROXABAN
  4. LAMOTRIGINE [Concomitant]
     Active Substance: LAMOTRIGINE
  5. VALSARTAN [Concomitant]
     Active Substance: VALSARTAN
  6. ALPRAZOLAM [Concomitant]
     Active Substance: ALPRAZOLAM
  7. MONTELUKAST [Concomitant]
     Active Substance: MONTELUKAST
  8. TRELEGY ELLIPTA [Concomitant]
     Active Substance: FLUTICASONE FUROATE\UMECLIDINIUM BROMIDE\VILANTEROL TRIFENATATE

REACTIONS (3)
  - Lung neoplasm malignant [Unknown]
  - Dyspnoea [Unknown]
  - Surgery [Unknown]

NARRATIVE: CASE EVENT DATE: 20240101
